FAERS Safety Report 24714530 (Version 1)
Quarter: 2024Q4

REPORT INFORMATION
  Report Type: Report from Study
  Country: US (occurrence: US)
  Receive Date: 20241209
  Receipt Date: 20241209
  Transmission Date: 20250115
  Serious: Yes (Other)
  Sender: ABBVIE
  Company Number: US-ABBVIE-6035974

PATIENT
  Age: 36 Year
  Sex: Female

DRUGS (2)
  1. SKYRIZI [Suspect]
     Active Substance: RISANKIZUMAB-RZAA
     Indication: Product used for unknown indication
     Route: 058
  2. B12 [Concomitant]
     Indication: Product used for unknown indication
     Dosage: B12 SHOTS

REACTIONS (6)
  - Ankle fracture [Unknown]
  - Nervousness [Unknown]
  - Weight decreased [Unknown]
  - Anal incontinence [Unknown]
  - Stress [Unknown]
  - Tibia fracture [Unknown]

NARRATIVE: CASE EVENT DATE: 20240101
